FAERS Safety Report 4718407-1 (Version None)
Quarter: 2005Q3

REPORT INFORMATION
  Report Type: 
  Country: None (occurrence: None)
  Receive Date: 20050720
  Receipt Date: 20050713
  Transmission Date: 20060218
  Serious: Yes (Death, Hospitalization)
  Sender: FDA-Public Use
  Company Number: PHBS2005GB10034

PATIENT
  Age: 76 Year
  Sex: Male

DRUGS (6)
  1. ACITRETIN [Suspect]
     Dosage: 50 MG/D
     Route: 048
  2. ACITRETIN [Suspect]
     Dosage: 70 MG/D
     Route: 048
  3. METHOTREXATE [Suspect]
     Dosage: 10 MG, QW
     Route: 048
  4. EOSINE [Concomitant]
     Route: 061
  5. EMOLLIENTS AND PROTECTIVES [Concomitant]
  6. CYCLOSPORINE [Suspect]
     Indication: PITYRIASIS RUBRA PILARIS
     Dosage: 2.5 MG/KG/D
     Route: 048

REACTIONS (13)
  - ALANINE AMINOTRANSFERASE INCREASED [None]
  - BILIARY DILATATION [None]
  - BLOOD ALKALINE PHOSPHATASE INCREASED [None]
  - BLOOD BILIRUBIN INCREASED [None]
  - CHOLELITHIASIS [None]
  - JAUNDICE [None]
  - LIVER FUNCTION TEST ABNORMAL [None]
  - MASS [None]
  - METASTASES TO BONE [None]
  - NEPHRECTOMY [None]
  - RENAL CELL CARCINOMA STAGE UNSPECIFIED [None]
  - SKIN BURNING SENSATION [None]
  - TREMOR [None]
